FAERS Safety Report 5332869-0 (Version None)
Quarter: 2007Q2

REPORT INFORMATION
  Report Type: 
  Country: None (occurrence: None)
  Receive Date: 20070521
  Receipt Date: 20070504
  Transmission Date: 20071010
  Serious: Yes (Life-Threatening, Hospitalization)
  Sender: FDA-Public Use
  Company Number: DSA_29815_2007

PATIENT
  Sex: Male

DRUGS (4)
  1. TAVOR /00273201/ (TAVOR) 1 DF [Suspect]
     Dosage: 6 MG 1X ORAL
     Route: 048
     Dates: start: 20070421, end: 20070421
  2. SEROQUEL [Suspect]
     Dosage: 7000 MG 1X ORAL
     Route: 048
     Dates: start: 20070421, end: 20070421
  3. ZOLPIDEM [Suspect]
     Dosage: 200 MG 1X ORAL
     Route: 048
     Dates: start: 20070421, end: 20070421
  4. ETHANOL (ALCOHOL) [Suspect]
     Dosage: 1 DF 1X ORAL
     Route: 048
     Dates: start: 20070421, end: 20070421

REACTIONS (4)
  - MULTIPLE DRUG OVERDOSE [None]
  - SOPOR [None]
  - SUICIDE ATTEMPT [None]
  - TACHYCARDIA [None]
